FAERS Safety Report 7126762-0 (Version None)
Quarter: 2010Q4

REPORT INFORMATION
  Report Type: 
  Country: None (occurrence: None)
  Receive Date: 20101129
  Receipt Date: 20101014
  Transmission Date: 20110411
  Serious: Yes (Other)
  Sender: FDA-Public Use
  Company Number: GB-MERCK-1010GBR00031

PATIENT
  Age: 69 Year
  Sex: Male

DRUGS (3)
  1. COZAAR [Suspect]
     Route: 065
  2. INSULIN [Concomitant]
     Route: 065
     Dates: start: 20030101
  3. METFORMIN HYDROCHLORIDE [Concomitant]
     Indication: DIABETES MELLITUS
     Route: 048
     Dates: start: 20020101

REACTIONS (4)
  - ABDOMINAL PAIN [None]
  - DEAFNESS [None]
  - DIARRHOEA [None]
  - MALAISE [None]
